FAERS Safety Report 20833104 (Version 1)
Quarter: 2022Q2

REPORT INFORMATION
  Report Type: Spontaneous
  Country: AU (occurrence: AU)
  Receive Date: 20220516
  Receipt Date: 20220516
  Transmission Date: 20220721
  Serious: Yes (Other)
  Sender: FDA-Public Use
  Company Number: AU-MYLANLABS-2022M1035734

PATIENT
  Age: 83 Year
  Sex: Male

DRUGS (1)
  1. FONDAPARINUX [Suspect]
     Active Substance: FONDAPARINUX
     Indication: Thrombocytopenia
     Dosage: 7.5 MILLIGRAM, QD
     Route: 058

REACTIONS (2)
  - Haematoma [Recovered/Resolved]
  - Off label use [Unknown]
